FAERS Safety Report 8884799 (Version 3)
Quarter: 2013Q1

REPORT INFORMATION
  Report Type: Spontaneous
  Country: US (occurrence: US)
  Receive Date: 20121102
  Receipt Date: 20130214
  Transmission Date: 20140127
  Serious: Yes (Hospitalization, Other)
  Sender: FDA-Public Use
  Company Number: US-BAYER-2012-114467

PATIENT
  Age: 31 Year
  Sex: Female
  Weight: 68.03 kg

DRUGS (12)
  1. YASMIN [Suspect]
     Indication: ACNE
     Dosage: UNK
     Dates: start: 2001, end: 200610
  2. YASMIN [Suspect]
     Indication: MENORRHAGIA
  3. YASMIN [Suspect]
     Indication: CONTRACEPTION
  4. LORTAB [Concomitant]
     Dosage: 5/500
     Route: 048
     Dates: start: 20061018
  5. METOCLOPRAMIDE [Concomitant]
     Dosage: 10 MG, UNK
     Route: 048
     Dates: start: 20061018
  6. TYLENOL W/CODEINE NO. 4 [Concomitant]
     Dosage: UNK
     Route: 048
     Dates: start: 20061020
  7. METHIMAZOLE [Concomitant]
     Dosage: 5 MG, UNK
     Route: 048
     Dates: start: 20061020
  8. METHIMAZOLE [Concomitant]
     Dosage: 5 MG, TID
     Route: 048
  9. VICODIN [Concomitant]
  10. ANTIEMETICS AND ANTINAUSEANTS [Concomitant]
     Indication: NAUSEA
  11. ANTIEMETICS AND ANTINAUSEANTS [Concomitant]
     Indication: VOMITING
  12. ARMOUR THYROID [Concomitant]
     Indication: THYROID DISORDER
     Dosage: UNK
     Dates: start: 200511

REACTIONS (7)
  - Cerebrovascular accident [None]
  - Transverse sinus thrombosis [None]
  - Transverse sinus thrombosis [None]
  - Jugular vein thrombosis [None]
  - Injury [None]
  - Pain [None]
  - Pain [None]
